FAERS Safety Report 21409251 (Version 1)
Quarter: 2022Q4

REPORT INFORMATION
  Report Type: Spontaneous
  Country: US (occurrence: US)
  Receive Date: 20221004
  Receipt Date: 20221004
  Transmission Date: 20230113
  Serious: Yes (Hospitalization, Other)
  Sender: FDA-Public Use
  Company Number: US-IBSA PHARMA INC.-2022IBS000285

PATIENT

DRUGS (21)
  1. LEVOTHYROXINE SODIUM [Suspect]
     Active Substance: LEVOTHYROXINE SODIUM
     Indication: Product used for unknown indication
     Dosage: 275 MICROGRAM
  2. LEVOTHYROXINE SODIUM [Suspect]
     Active Substance: LEVOTHYROXINE SODIUM
     Dosage: 50 MICROGRAM
  3. KORLYM [Suspect]
     Active Substance: MIFEPRISTONE
     Indication: Pituitary-dependent Cushing^s syndrome
     Dosage: 300 MILLIGRAM, QD
     Route: 048
     Dates: start: 20180329, end: 20180411
  4. KORLYM [Suspect]
     Active Substance: MIFEPRISTONE
     Dosage: 600 MILLIGRAM, QD
     Route: 048
     Dates: start: 20180412, end: 20180710
  5. KORLYM [Suspect]
     Active Substance: MIFEPRISTONE
     Dosage: 300 MILLIGRAM, QD
     Route: 048
     Dates: start: 20180711, end: 20181112
  6. KORLYM [Suspect]
     Active Substance: MIFEPRISTONE
     Dosage: 600 MILLIGRAM, QD
     Route: 048
     Dates: start: 20181113
  7. KORLYM [Suspect]
     Active Substance: MIFEPRISTONE
     Dosage: UNK
     Route: 048
     Dates: start: 20190301, end: 201904
  8. KORLYM [Suspect]
     Active Substance: MIFEPRISTONE
     Dosage: 600 MILLIGRAM, QD
     Route: 048
     Dates: start: 201904, end: 2022
  9. CLINDAMYCIN [Suspect]
     Active Substance: CLINDAMYCIN
     Indication: Cellulitis
     Dosage: UNK
  10. METFORMIN [Concomitant]
     Active Substance: METFORMIN HYDROCHLORIDE
     Indication: Type 2 diabetes mellitus
     Dosage: UNK
  11. KCL [Concomitant]
     Active Substance: POTASSIUM CHLORIDE
     Indication: Product used for unknown indication
     Dosage: UNK
  12. GABAPENTIN [Concomitant]
     Active Substance: GABAPENTIN
     Indication: Product used for unknown indication
     Dosage: UNK
  13. SERTRALINE [Concomitant]
     Active Substance: SERTRALINE HYDROCHLORIDE
     Indication: Product used for unknown indication
     Dosage: UNK
  14. CRESTOR [Concomitant]
     Active Substance: ROSUVASTATIN CALCIUM
     Indication: Product used for unknown indication
     Dosage: UNK
  15. ALLEGRA ALLERGY [Concomitant]
     Active Substance: FEXOFENADINE HYDROCHLORIDE
     Indication: Product used for unknown indication
     Dosage: UNK
  16. ASPIRIN [Concomitant]
     Active Substance: ASPIRIN
     Indication: Product used for unknown indication
     Dosage: UNK
  17. VITAMIN D3 [Concomitant]
     Active Substance: CHOLECALCIFEROL
     Indication: Product used for unknown indication
     Dosage: UNK
  18. PROBIOTICS                         /07325001/ [Concomitant]
     Indication: Product used for unknown indication
     Dosage: UNK
  19. SPIRONOLACTONE [Concomitant]
     Active Substance: SPIRONOLACTONE
     Indication: Product used for unknown indication
     Dosage: UNK
  20. SPIRONOLACTONE [Concomitant]
     Active Substance: SPIRONOLACTONE
     Dosage: UNK
  21. BUMETANIDE [Concomitant]
     Active Substance: BUMETANIDE
     Indication: Product used for unknown indication
     Dosage: UNK

REACTIONS (10)
  - Blood pressure systolic decreased [Unknown]
  - Blood glucose decreased [Unknown]
  - Cellulitis [Unknown]
  - Fall [Unknown]
  - Adrenocortical insufficiency acute [Unknown]
  - Arrhythmia [Unknown]
  - Asthenia [Unknown]
  - Dehydration [Unknown]
  - Swelling [Unknown]
  - Laboratory test abnormal [Unknown]

NARRATIVE: CASE EVENT DATE: 20220101
